FAERS Safety Report 16687030 (Version 1)
Quarter: 2019Q3

REPORT INFORMATION
  Report Type: Spontaneous
  Country: CA (occurrence: CA)
  Receive Date: 20190809
  Receipt Date: 20190809
  Transmission Date: 20191004
  Serious: Yes (Other)
  Sender: FDA-Public Use
  Company Number: CA-ORION CORPORATION ORION PHARMA-TREX2019-2678

PATIENT
  Age: 76 Year
  Sex: Female
  Weight: 65.6 kg

DRUGS (1)
  1. METHOTREXATE (TRADE NAME UNKNOWN) [Suspect]
     Active Substance: METHOTREXATE
     Indication: PRODUCT USED FOR UNKNOWN INDICATION
     Route: 065

REACTIONS (7)
  - Latent tuberculosis [Unknown]
  - Chills [Unknown]
  - Hepatic cirrhosis [Unknown]
  - Insomnia [Unknown]
  - Stomatitis [Unknown]
  - Nausea [Unknown]
  - Dizziness [Unknown]
